FAERS Safety Report 11922089 (Version 2)
Quarter: 2016Q1

REPORT INFORMATION
  Report Type: Spontaneous
  Country: US (occurrence: US)
  Receive Date: 20160115
  Receipt Date: 20160321
  Transmission Date: 20160526
  Serious: No
  Sender: FDA-Public Use
  Company Number: US-PFIZER INC-2016012423

PATIENT
  Age: 60 Year
  Sex: Female
  Weight: 60.33 kg

DRUGS (10)
  1. LYRICA [Suspect]
     Active Substance: PREGABALIN
     Dosage: 75 MG, DAILY (25 MG TWO CAPSULES EVERY MORNING AND ONE CAPSULE EVERY EVENING.)
     Route: 048
  2. ZETIA [Suspect]
     Active Substance: EZETIMIBE
     Indication: BLOOD CHOLESTEROL
     Dosage: TOOK IN THE EVENING
  3. FISH OIL [Concomitant]
     Active Substance: FISH OIL
     Indication: CARDIAC DISORDER
     Dosage: 1200 UNK, UNK, UNIT NOT PROVIDED
  4. LYRICA [Suspect]
     Active Substance: PREGABALIN
     Indication: NEUROPATHY PERIPHERAL
     Dosage: 25 MG, 1X/DAY (TAKE ONE CAPSULE BY MOUTH NIGHTLY)
     Route: 048
     Dates: start: 20151112
  5. LYRICA [Suspect]
     Active Substance: PREGABALIN
     Indication: VULVOVAGINAL PAIN
     Dosage: 25 MG, 2X/DAY (ONE IN THE MORNING AND ONE IN THE EVENING)
     Route: 048
  6. ADVIL [Concomitant]
     Active Substance: IBUPROFEN
     Indication: PAIN
     Dosage: UNK UNK, AS NEEDED
  7. TOPAMAX [Concomitant]
     Active Substance: TOPIRAMATE
     Indication: MIGRAINE
     Dosage: 25 MG, TWO IN THE MORNING AND TWO IN THE EVENING
  8. CALTRATE [Concomitant]
     Active Substance: CALCIUM CARBONATE
     Indication: OSTEOPOROSIS
     Dosage: 600 MG, ONE IN THE MORNING, ONE IN THE EVENING
  9. MULTIVITAMINS [Concomitant]
     Active Substance: VITAMINS
     Dosage: UNK, ONCE IN THE MORNING EVERY OTHER DAY
  10. LYRICA [Suspect]
     Active Substance: PREGABALIN
     Dosage: 75 MG LYRICA ONE IN THE MORNING AND ONE IN THE EVENING
     Dates: start: 20151229

REACTIONS (3)
  - Myalgia [Unknown]
  - Discomfort [Unknown]
  - Drug effect incomplete [Unknown]
